FAERS Safety Report 16956519 (Version 1)
Quarter: 2019Q4

REPORT INFORMATION
  Report Type: Spontaneous
  Country: US (occurrence: US)
  Receive Date: 20191024
  Receipt Date: 20191024
  Transmission Date: 20200122
  Serious: No
  Sender: FDA-Public Use
  Company Number: US-ASTELLAS-2019US027361

PATIENT
  Age: 39 Year
  Sex: Male

DRUGS (1)
  1. MYCAMINE [Suspect]
     Active Substance: MICAFUNGIN SODIUM
     Indication: PRODUCT USED FOR UNKNOWN INDICATION
     Dosage: 150MG IN 250ML NORMAL SALINE, UNKNOWN FREQ.
     Route: 065

REACTIONS (1)
  - Product storage error [Unknown]
